FAERS Safety Report 8241501-8 (Version None)
Quarter: 2012Q1

REPORT INFORMATION
  Report Type: 
  Country: None (occurrence: None)
  Receive Date: 20120328
  Receipt Date: 20110808
  Transmission Date: 20120608
  Serious: Yes (Death)
  Sender: FDA-Public Use
  Company Number: US-COVIDIEN/TYCO HEALTHCARE/MALLINCKRODT-T201101562

PATIENT
  Age: 26 Year
  Sex: Male

DRUGS (3)
  1. BENZODIAZEPINE DERIVATIVES [Suspect]
     Dosage: UNK
  2. MARIJUANA [Suspect]
     Dosage: UNK
  3. METHADOSE [Suspect]

REACTIONS (1)
  - DRUG INTERACTION [None]
